FAERS Safety Report 8311472 (Version 3)
Quarter: 2014Q2

REPORT INFORMATION
  Report Type: Spontaneous
  Country: CA (occurrence: CA)
  Receive Date: 20111227
  Receipt Date: 20131018
  Transmission Date: 20141212
  Serious: Yes (Other)
  Sender: FDA-Public Use
  Company Number: CA-PFIZER INC-2011274520

PATIENT
  Age: 55 Year
  Sex: Female
  Weight: 49.89 kg

DRUGS (8)
  1. DILANTIN [Suspect]
     Indication: CONVULSION
     Dosage: 300 MG, 5 TIMES A WEEK, AT BEDTIME
     Route: 048
     Dates: start: 197411, end: 1989
  2. DILANTIN [Interacting]
     Indication: POST-TRAUMATIC EPILEPSY
     Dosage: 275 MG, 2X/WEEK
     Route: 048
     Dates: start: 1989, end: 20111027
  3. PHENOBARBITAL [Suspect]
     Dosage: AT BEDTIME
     Dates: start: 197411, end: 20111027
  4. BIAXIN [Interacting]
     Dosage: UNK
  5. CARBOPLATIN [Interacting]
     Indication: CERVIX CARCINOMA
     Dosage: UNK
     Dates: start: 200108
  6. MINOCYCLINE [Interacting]
     Dosage: UNK
     Dates: start: 2011
  7. BACTRIM [Interacting]
     Dosage: UNK
  8. SYNTHROID [Concomitant]
     Indication: HYPOTHYROIDISM
     Dosage: 100 UG, 1X/DAY
     Dates: start: 1980

REACTIONS (39)
  - Cholecystitis acute [Recovered/Resolved]
  - Lyme disease [Unknown]
  - Cervix carcinoma [Unknown]
  - Drop attacks [Recovered/Resolved]
  - Central nervous system lesion [Unknown]
  - Mental impairment [Unknown]
  - Dyskinesia [Recovered/Resolved]
  - Nausea [Recovered/Resolved]
  - Dysphagia [Recovered/Resolved]
  - Somnolence [Unknown]
  - Depression [Recovered/Resolved]
  - Obsessive-compulsive disorder [Recovered/Resolved]
  - Hypoaesthesia [Unknown]
  - Fatigue [Recovered/Resolved]
  - Asthenia [Recovered/Resolved]
  - Feeling abnormal [Recovered/Resolved]
  - Dysarthria [Recovered/Resolved]
  - Speech disorder [Recovered/Resolved]
  - Paraesthesia [Unknown]
  - Weight decreased [Unknown]
  - Drug interaction [Unknown]
  - Overdose [Unknown]
  - Anticonvulsant drug level decreased [Unknown]
  - Pain in extremity [Unknown]
  - Areflexia [Unknown]
  - Vibratory sense increased [Unknown]
  - Hyporeflexia [Unknown]
  - Muscular weakness [Recovered/Resolved]
  - Blood pressure decreased [Unknown]
  - Personality disorder [Recovered/Resolved]
  - Drug effect increased [Unknown]
  - Abnormal sleep-related event [Unknown]
  - Nystagmus [Unknown]
  - Bradyphrenia [Unknown]
  - Nervousness [Unknown]
  - Anticonvulsant drug level increased [Unknown]
  - Gait disturbance [Unknown]
  - Fall [Recovered/Resolved]
  - Increased appetite [Unknown]
